FAERS Safety Report 19283709 (Version 3)
Quarter: 2023Q2

REPORT INFORMATION
  Report Type: Spontaneous
  Country: FR (occurrence: FR)
  Receive Date: 20210520
  Receipt Date: 20230503
  Transmission Date: 20230721
  Serious: Yes (Life-Threatening, Other)
  Sender: FDA-Public Use
  Company Number: FR-CELLTRION INC.-2021FR006680

PATIENT

DRUGS (8)
  1. HERZUMA [Suspect]
     Active Substance: TRASTUZUMAB-PKRB
     Indication: HER2 positive breast cancer
     Dosage: 3 WEEK SCHEDULE
     Route: 042
     Dates: start: 201811
  2. HERZUMA [Suspect]
     Active Substance: TRASTUZUMAB-PKRB
     Dosage: 8 MILLIGRAM/KILOGRAM, CYCLICAL (90-MINUTE INFUSION AS LOADING DOSE)
     Route: 042
  3. HERZUMA [Suspect]
     Active Substance: TRASTUZUMAB-PKRB
     Dosage: 6 MILLIGRAM/KILOGRAM, CYCLICAL (30-MINUTE INFUSION AS MAINTENANCE DOSE)
     Route: 042
  4. PERTUZUMAB [Suspect]
     Active Substance: PERTUZUMAB
     Indication: HER2 positive breast cancer
     Dosage: 3 WEEK SCHEDULE
     Route: 042
  5. PERTUZUMAB [Suspect]
     Active Substance: PERTUZUMAB
     Dosage: 840 MILLIGRAM (LOADING DOSE)
     Route: 042
  6. PERTUZUMAB [Suspect]
     Active Substance: PERTUZUMAB
     Dosage: 420 MILLIGRAM (MAINTENANCE DOSE)
     Route: 042
  7. PERJETA [Suspect]
     Active Substance: PERTUZUMAB
     Indication: HER2 positive breast cancer
     Dosage: 420 MILLIGRAM, CYCLICAL (30-MINUTE INFUSION AS MAINTENANCE DOSE)
     Route: 042
  8. PERJETA [Suspect]
     Active Substance: PERTUZUMAB
     Dosage: 840 MILLIGRAM, CYCLICAL (60-MINUTE INFUSION AS LOADING DOSE)
     Route: 042

REACTIONS (13)
  - Febrile neutropenia [Unknown]
  - Left ventricular dysfunction [Unknown]
  - Diarrhoea [Unknown]
  - Fatigue [Unknown]
  - Ejection fraction decreased [Unknown]
  - Acute pulmonary oedema [Unknown]
  - Cardiac failure [Unknown]
  - Xerosis [Unknown]
  - Eczema [Unknown]
  - Nausea [Unknown]
  - Mucosal inflammation [Unknown]
  - Arthralgia [Unknown]
  - Infusion related reaction [Unknown]
